FAERS Safety Report 6292948-0 (Version None)
Quarter: 2009Q3

REPORT INFORMATION
  Report Type: 
  Country: None (occurrence: None)
  Receive Date: 20090731
  Receipt Date: 20090724
  Transmission Date: 20100115
  Serious: Yes (Hospitalization, Other)
  Sender: FDA-Public Use
  Company Number: US-CELGENEUS-163-20785-09070112

PATIENT
  Sex: Female
  Weight: 69.5 kg

DRUGS (6)
  1. THALOMID [Suspect]
     Indication: MULTIPLE MYELOMA
     Route: 048
     Dates: start: 20090101
  2. THALOMID [Suspect]
     Route: 048
     Dates: start: 20090326, end: 20090628
  3. MELPHALAN [Suspect]
     Indication: MULTIPLE MYELOMA
     Route: 048
     Dates: start: 20090101
  4. MELPHALAN [Suspect]
     Route: 048
     Dates: start: 20090326, end: 20090531
  5. PREDNISONE [Suspect]
     Indication: MULTIPLE MYELOMA
     Route: 048
     Dates: start: 20090326, end: 20090628
  6. ASPIRIN [Concomitant]
     Indication: PROPHYLAXIS
     Route: 048

REACTIONS (3)
  - CARDIAC FAILURE CONGESTIVE [None]
  - LEFT VENTRICULAR DYSFUNCTION [None]
  - THROMBOCYTOPENIA [None]
